FAERS Safety Report 6725527-9 (Version None)
Quarter: 2010Q2

REPORT INFORMATION
  Report Type: 
  Country: None (occurrence: None)
  Receive Date: 20100514
  Receipt Date: 20100505
  Transmission Date: 20101027
  Serious: Yes (Hospitalization)
  Sender: FDA-Public Use
  Company Number: FR-JNJFOC-20100504354

PATIENT
  Sex: Male

DRUGS (9)
  1. CONTRAMAL [Suspect]
     Indication: DRUG USE FOR UNKNOWN INDICATION
     Route: 048
  2. CEFAMANDOLE SODIUM [Suspect]
     Indication: BRONCHITIS
     Route: 042
  3. LOXEN [Suspect]
     Indication: DRUG USE FOR UNKNOWN INDICATION
     Route: 042
  4. ACUPAN [Suspect]
     Indication: BRONCHITIS
     Route: 042
  5. LOVENOX [Suspect]
     Indication: DRUG USE FOR UNKNOWN INDICATION
     Route: 058
  6. LODOZ [Concomitant]
     Indication: DRUG USE FOR UNKNOWN INDICATION
  7. SERMION [Concomitant]
     Indication: DRUG USE FOR UNKNOWN INDICATION
  8. ZANIDIP [Concomitant]
     Indication: DRUG USE FOR UNKNOWN INDICATION
  9. METFORMIN HCL [Concomitant]
     Indication: DRUG USE FOR UNKNOWN INDICATION

REACTIONS (2)
  - RENAL FAILURE ACUTE [None]
  - RENAL FAILURE CHRONIC [None]
